FAERS Safety Report 5701793-3 (Version None)
Quarter: 2008Q2

REPORT INFORMATION
  Report Type: 
  Country: None (occurrence: None)
  Receive Date: 20080410
  Receipt Date: 20080410
  Transmission Date: 20081010
  Serious: Yes (Disabling)
  Sender: FDA-Public Use
  Company Number: None

PATIENT
  Age: 44 Year
  Sex: Female
  Weight: 4 kg

DRUGS (1)
  1. DEPO-MEDROL [Suspect]
     Dosage: OVER A FEW MONTHS LAST GIVEN 12-07
     Dates: end: 20071201

REACTIONS (8)
  - ABASIA [None]
  - DRUG TOXICITY [None]
  - MENTAL DISORDER [None]
  - NONSPECIFIC REACTION [None]
  - PAIN [None]
  - PROCEDURAL PAIN [None]
  - SCREAMING [None]
  - UNEVALUABLE EVENT [None]
